FAERS Safety Report 9250523 (Version 1)
Quarter: 2013Q1

REPORT INFORMATION
  Report Type: Spontaneous
  Country: US (occurrence: None)
  Receive Date: 20130305
  Receipt Date: 20130305
  Transmission Date: 20140127
  Serious: Yes (Other)
  Sender: FDA-Public Use
  Company Number: 163-21880-12062497

PATIENT
  Age: 66 Year
  Sex: Male

DRUGS (14)
  1. REVLIMID [Suspect]
     Indication: PLASMA CELL MYELOMA
     Route: 048
     Dates: start: 201106
  2. CARVEDILOL (CARVEDILOL) [Concomitant]
  3. SYNTHROID (LEVOTHYROXINE SODIUM) [Concomitant]
  4. DECADRON (DEXAMETHASONE) [Concomitant]
  5. PRILOSEC [Concomitant]
  6. NASONEX (MOMETASONE FUROATE) [Concomitant]
  7. CARDURA (DOXAZOSIN MESILATE) [Concomitant]
  8. AMBIEN (ZOLPIDEM TARTRATE) [Concomitant]
  9. VITAMIN C [Concomitant]
  10. VITAMINS [Concomitant]
  11. WHOLE BLOOD [Concomitant]
  12. NEUPOGEN (FILGRASTIM) [Concomitant]
  13. ACYCLOVIR (ACICLOVIR) [Concomitant]
  14. GLUCOTROL (GLIPIZIDE) [Concomitant]

REACTIONS (3)
  - Platelet count decreased [None]
  - Nasopharyngitis [None]
  - Pyrexia [None]
